FAERS Safety Report 24777955 (Version 1)
Quarter: 2024Q4

REPORT INFORMATION
  Report Type: Spontaneous
  Country: US (occurrence: None)
  Receive Date: 20241225
  Receipt Date: 20241225
  Transmission Date: 20250115
  Serious: Yes (Disabling, Other)
  Sender: Public
  Company Number: None

PATIENT
  Age: 24 Year
  Sex: Male

DRUGS (1)
  1. BUPROPION [Suspect]
     Active Substance: BUPROPION
     Indication: Depression
     Dates: start: 20241025, end: 20241028

REACTIONS (3)
  - Vision blurred [None]
  - Myopia [None]
  - Vision blurred [None]

NARRATIVE: CASE EVENT DATE: 20241025
